FAERS Safety Report 12214887 (Version 1)
Quarter: 2016Q1

REPORT INFORMATION
  Report Type: Spontaneous
  Country: US (occurrence: US)
  Receive Date: 20160328
  Receipt Date: 20160328
  Transmission Date: 20160526
  Serious: No
  Sender: FDA-Public Use
  Company Number: US-009507513-1510USA002779

PATIENT

DRUGS (1)
  1. CUBICIN [Suspect]
     Active Substance: DAPTOMYCIN

REACTIONS (1)
  - Product quality issue [Unknown]
